FAERS Safety Report 7516139-8 (Version None)
Quarter: 2011Q2

REPORT INFORMATION
  Report Type: 
  Country: None (occurrence: None)
  Receive Date: 20110601
  Receipt Date: 20110523
  Transmission Date: 20111010
  Serious: Yes (Other)
  Sender: FDA-Public Use
  Company Number: DK-ROCHE-778741

PATIENT

DRUGS (7)
  1. IRINOTECAN HYDROCHLORIDE [Suspect]
     Dosage: FREQUENCY: OVER 30 MINUTES EVERY SECOND WEEK
     Route: 042
  2. PREDNISOLONE [Concomitant]
     Route: 048
  3. ONDANSETRON [Concomitant]
     Route: 048
  4. BEVACIZUMAB [Suspect]
     Dosage: FREQUENCY: EVRY SECOND WEEK
     Route: 065
  5. CETUXIMAB [Suspect]
     Dosage: FREQUENCY; INFUSED WITHIN 60 MINUTES, FORM: INFUSION
     Route: 042
  6. CLEMASTINE FUMARATE [Concomitant]
     Route: 042
  7. METOCLOPRAMIDE [Concomitant]
     Dosage: ROUTE: PN

REACTIONS (4)
  - FATIGUE [None]
  - DIARRHOEA [None]
  - NEUTROPENIA [None]
  - SKIN TOXICITY [None]
